FAERS Safety Report 24556507 (Version 1)
Quarter: 2024Q4

REPORT INFORMATION
  Report Type: Spontaneous
  Country: US (occurrence: None)
  Receive Date: 20241027
  Receipt Date: 20241027
  Transmission Date: 20250115
  Serious: Yes (Hospitalization, Disabling, Other)
  Sender: Public
  Company Number: None

PATIENT
  Age: 3 Day
  Sex: Female
  Weight: 65.25 kg

DRUGS (16)
  1. EMGALITY [Suspect]
     Active Substance: GALCANEZUMAB-GNLM
     Indication: Migraine
     Dates: start: 20241001, end: 20241018
  2. Irbesarten 75mg [Concomitant]
  3. Diltiazemb 240mg [Concomitant]
  4. ASA 325mg, [Concomitant]
  5. Tizepatide 7.5mg [Concomitant]
  6. spironolactone 75mg [Concomitant]
  7. MINOXIDIL [Concomitant]
  8. ROSUVASTATIN [Concomitant]
     Active Substance: ROSUVASTATIN
  9. ZETIA [Concomitant]
     Active Substance: EZETIMIBE
  10. VAGIFEM [Concomitant]
     Active Substance: ESTRADIOL
  11. bupropion XL300mg [Concomitant]
  12. PANTOPRAZOLE [Concomitant]
     Active Substance: PANTOPRAZOLE
  13. Vit D 2000u [Concomitant]
  14. VITAMINS [Concomitant]
     Active Substance: VITAMINS
  15. ZINC [Concomitant]
  16. TYLENOL [Concomitant]

REACTIONS (2)
  - Parietal lobe stroke [None]
  - Vasoconstriction [None]

NARRATIVE: CASE EVENT DATE: 20241018
